FAERS Safety Report 4957393-6 (Version None)
Quarter: 2006Q1

REPORT INFORMATION
  Report Type: 
  Country: None (occurrence: None)
  Receive Date: 20060327
  Receipt Date: 20060314
  Transmission Date: 20060701
  Serious: Yes (Hospitalization, Other)
  Sender: FDA-Public Use
  Company Number: HQWYE347515MAR06

PATIENT
  Age: 38 Year
  Sex: Female

DRUGS (1)
  1. PREMARIN [Suspect]
     Indication: OESTROGEN REPLACEMENT THERAPY
     Dosage: 0.625 MG 1X PER 1 DAY ORAL
     Route: 048
     Dates: start: 20030101, end: 20030701

REACTIONS (5)
  - ARRHYTHMIA [None]
  - CHEST PAIN [None]
  - DYSPNOEA [None]
  - PARAESTHESIA [None]
  - THROMBOSIS [None]
